FAERS Safety Report 4389929-0 (Version None)
Quarter: 2004Q2

REPORT INFORMATION
  Report Type: 
  Country: None (occurrence: None)
  Receive Date: 20040630
  Receipt Date: 20040630
  Transmission Date: 20050107
  Serious: Yes (Hospitalization)
  Sender: FDA-Public Use
  Company Number: None

PATIENT
  Age: 76 Year
  Sex: Male
  Weight: 86.2 kg

DRUGS (8)
  1. INTEGRILIN [Suspect]
     Indication: ANTIPLATELET THERAPY
     Dosage: 2( 7.9 ML BOLUSES)14 ML/HR IV
     Route: 042
     Dates: start: 20040623, end: 20040624
  2. MIDAZOLAM HCL [Concomitant]
  3. FENTANYL [Concomitant]
  4. NITROGLYCERIN [Concomitant]
  5. MORPHINE [Concomitant]
  6. ASPIRIN [Concomitant]
  7. CLOPIDOGREL [Concomitant]
  8. PEPCID [Concomitant]

REACTIONS (2)
  - HAEMATOMA [None]
  - VASCULAR PSEUDOANEURYSM [None]
